FAERS Safety Report 23614496 (Version 2)
Quarter: 2024Q2

REPORT INFORMATION
  Report Type: Report from Study
  Country: US (occurrence: US)
  Receive Date: 20240311
  Receipt Date: 20240627
  Transmission Date: 20240716
  Serious: Yes (Other)
  Sender: FDA-Public Use
  Company Number: US-BEIGENE-BGN-2024-003694

PATIENT

DRUGS (2)
  1. BRUKINSA [Suspect]
     Active Substance: ZANUBRUTINIB
     Indication: Mantle cell lymphoma
     Dosage: 320 MILLIGRAM, DAILY
     Route: 048
     Dates: start: 20211203
  2. BRUKINSA [Suspect]
     Active Substance: ZANUBRUTINIB
     Dosage: 320 MILLIGRAM, DAILY
     Route: 048
     Dates: start: 20211203

REACTIONS (4)
  - Blood pressure increased [Recovered/Resolved]
  - COVID-19 [Unknown]
  - Throat irritation [Unknown]
  - Cough [Not Recovered/Not Resolved]
